FAERS Safety Report 8927118 (Version 1)
Quarter: 2012Q4

REPORT INFORMATION
  Report Type: 
  Country: FR (occurrence: FR)
  Receive Date: 20121127
  Receipt Date: 20121127
  Transmission Date: 20130627
  Serious: Yes (Death)
  Sender: FDA-Public Use
  Company Number: US-009507513-1209USA003722

PATIENT
  Age: 56 Year
  Sex: Female
  Weight: 65 kg

DRUGS (12)
  1. ISENTRESS [Suspect]
     Indication: HIV INFECTION
     Dosage: UNK
     Route: 048
     Dates: start: 20110429, end: 20110504
  2. ISENTRESS [Suspect]
     Dosage: UNK
     Route: 048
     Dates: start: 20110513, end: 20110619
  3. DARUNAVIR [Suspect]
     Indication: HIV INFECTION
     Dosage: UNK
     Route: 048
     Dates: start: 20110429, end: 20110504
  4. DARUNAVIR [Suspect]
     Dosage: UNK
     Route: 048
     Dates: start: 20110513, end: 20110619
  5. NORVIR [Suspect]
     Indication: HIV INFECTION
     Dosage: UNK
     Dates: start: 20110429, end: 20110504
  6. NORVIR [Suspect]
     Dosage: UNK
     Dates: start: 20110513, end: 20110619
  7. SULFAMETHOXAZOLE (+) TRIMETHOPRIM [Suspect]
     Indication: OPPORTUNISTIC INFECTION PROPHYLAXIS
     Dosage: UNK
     Dates: end: 20110620
  8. SULFAMETHOXAZOLE (+) TRIMETHOPRIM [Suspect]
     Dosage: UNK
     Dates: start: 20110414
  9. IMOVANE [Concomitant]
     Indication: INSOMNIA
     Dosage: UNK
     Route: 048
     Dates: start: 20110527
  10. ACETAMINOPHEN [Concomitant]
     Indication: PARAESTHESIA
     Dosage: UNK
     Route: 048
     Dates: start: 20110527
  11. ATARAX (HYDROXYZINE HYDROCHLORIDE) [Concomitant]
     Indication: PRURIGO
     Dosage: UNK
     Route: 048
     Dates: start: 20110328
  12. DEXERYL CREAM [Concomitant]
     Indication: PRURIGO
     Dosage: UNK
     Route: 061
     Dates: start: 20110328

REACTIONS (2)
  - Multi-organ failure [Fatal]
  - Drug reaction with eosinophilia and systemic symptoms [Fatal]
